FAERS Safety Report 6085291-6 (Version None)
Quarter: 2009Q1

REPORT INFORMATION
  Report Type: 
  Country: None (occurrence: None)
  Receive Date: 20090220
  Receipt Date: 20090211
  Transmission Date: 20090719
  Serious: No
  Sender: FDA-Public Use
  Company Number: GB-ASTRAZENECA-2009GB00469

PATIENT
  Sex: Male

DRUGS (4)
  1. QUETIAPINE FUMARATE [Suspect]
     Route: 048
     Dates: start: 20081201
  2. QUETIAPINE FUMARATE [Suspect]
     Route: 048
     Dates: start: 20090101
  3. CIPRALEX [Concomitant]
     Route: 048
     Dates: start: 20081201
  4. CIPRALEX [Concomitant]
     Route: 048
     Dates: start: 20090101

REACTIONS (2)
  - NEUTROPENIA [None]
  - OROPHARYNGEAL PAIN [None]
